FAERS Safety Report 5147267-2 (Version None)
Quarter: 2006Q4

REPORT INFORMATION
  Report Type: 
  Country: None (occurrence: None)
  Receive Date: 20061103
  Receipt Date: 20061024
  Transmission Date: 20070319
  Serious: Yes (Other)
  Sender: FDA-Public Use
  Company Number: 236992K06USA

PATIENT
  Age: 44 Year
  Sex: Male

DRUGS (2)
  1. REBIF [Suspect]
     Indication: MULTIPLE SCLEROSIS
     Dosage: 22 MCG, 3 IN 1 WEEKS,  SUBCUTANEOUS
     Route: 058
     Dates: start: 20060510
  2. EFFEXOR [Concomitant]

REACTIONS (3)
  - CONVULSION [None]
  - INJECTION SITE ERYTHEMA [None]
  - WEIGHT DECREASED [None]
